FAERS Safety Report 5265161-3 (Version None)
Quarter: 2007Q1

REPORT INFORMATION
  Report Type: 
  Country: None (occurrence: None)
  Receive Date: 20061213
  Receipt Date: 20050126
  Transmission Date: 20070707
  Serious: Yes (Death, Hospitalization)
  Sender: FDA-Public Use
  Company Number: 2005UW01373

PATIENT
  Age: 86 Year
  Sex: Female
  Weight: 63.9572 kg

DRUGS (7)
  1. TAMOXIFEN CITRATE [Suspect]
     Indication: BREAST CANCER
     Dates: start: 20040414, end: 20040426
  2. FOSAMAX [Concomitant]
  3. COZAAR [Concomitant]
  4. NORVASC [Concomitant]
  5. ASPIRIN [Concomitant]
  6. PROTONIX [Concomitant]
  7. BETAGEN [Concomitant]

REACTIONS (1)
  - OVARIAN CANCER [None]
